FAERS Safety Report 11266325 (Version 1)
Quarter: 2015Q3

REPORT INFORMATION
  Report Type: Spontaneous
  Country: US (occurrence: US)
  Receive Date: 20150713
  Receipt Date: 20150713
  Transmission Date: 20151125
  Serious: No
  Sender: FDA-Public Use
  Company Number: US-TAKEDA-2013-01975

PATIENT
  Sex: Male

DRUGS (5)
  1. VELCADE [Suspect]
     Active Substance: BORTEZOMIB
     Dosage: 2.27 MG, CYCLIC
     Route: 058
     Dates: start: 20120815, end: 20120917
  2. VELCADE [Suspect]
     Active Substance: BORTEZOMIB
     Dosage: 2.3 MG, CYCLIC
     Route: 058
     Dates: start: 20120930, end: 20130114
  3. VELCADE [Suspect]
     Active Substance: BORTEZOMIB
     Indication: PLASMA CELL MYELOMA
     Dosage: 2.44 MG, CYCLIC
     Route: 058
     Dates: start: 20120723, end: 20120813
  4. VELCADE [Suspect]
     Active Substance: BORTEZOMIB
     Dosage: 2.12 MG, CYCLIC
     Route: 058
     Dates: start: 20130117, end: 20130124
  5. VELCADE [Suspect]
     Active Substance: BORTEZOMIB
     Dosage: 2.16 MG, CYCLIC
     Route: 058
     Dates: start: 20130211, end: 20130221

REACTIONS (1)
  - Vomiting [Unknown]
